FAERS Safety Report 25856453 (Version 1)
Quarter: 2025Q3

REPORT INFORMATION
  Report Type: Report from Study
  Country: CA (occurrence: CA)
  Receive Date: 20250929
  Receipt Date: 20250929
  Transmission Date: 20251021
  Serious: Yes (Hospitalization, Other)
  Sender: ABBVIE
  Company Number: CA-ABBVIE-6475705

PATIENT
  Sex: Female

DRUGS (1)
  1. RINVOQ [Suspect]
     Active Substance: UPADACITINIB
     Indication: Rheumatoid arthritis
     Route: 048

REACTIONS (10)
  - Hospitalisation [Unknown]
  - Medical device implantation [Unknown]
  - Muscular weakness [Unknown]
  - Fall [Unknown]
  - Arthralgia [Unknown]
  - Nasopharyngitis [Unknown]
  - Infection [Unknown]
  - Joint injury [Unknown]
  - Knee operation [Unknown]
  - Erythema [Unknown]
